FAERS Safety Report 9820060 (Version 1)
Quarter: 2014Q1

REPORT INFORMATION
  Report Type: Spontaneous
  Country: US (occurrence: US)
  Receive Date: 20140116
  Receipt Date: 20140116
  Transmission Date: 20141002
  Serious: No
  Sender: FDA-Public Use
  Company Number: US-BAYER-2014-007461

PATIENT
  Sex: Female

DRUGS (1)
  1. ALEVE CAPLET [Suspect]
     Indication: RESPIRATORY TRACT CONGESTION
     Dosage: 3 DF, ONCE
     Route: 048
     Dates: start: 20140113, end: 20140113

REACTIONS (2)
  - Extra dose administered [None]
  - Off label use [None]
